FAERS Safety Report 5646516-1 (Version None)
Quarter: 2008Q1

REPORT INFORMATION
  Report Type: 
  Country: None (occurrence: None)
  Receive Date: 20080228
  Receipt Date: 20080228
  Transmission Date: 20080703
  Serious: Yes (Hospitalization)
  Sender: FDA-Public Use
  Company Number: None

PATIENT
  Sex: Female
  Weight: 86.1834 kg

DRUGS (9)
  1. AVASTIN [Suspect]
     Indication: COLON CANCER
     Dosage: (THERAPY DATES: CHEMO GIVEN LAST ON FRIDAY)
  2. PAXIL [Concomitant]
  3. WELLBUTRIN [Concomitant]
  4. TRICOR [Concomitant]
  5. ZOCOR [Concomitant]
  6. NEXIUM [Concomitant]
  7. ALLEGRA D 24 HOUR [Concomitant]
  8. ALBUTEROL [Concomitant]
  9. ADVAIR DISKUS 100/50 [Concomitant]

REACTIONS (2)
  - HYPERHIDROSIS [None]
  - RESTLESSNESS [None]
